FAERS Safety Report 8578447-1 (Version None)
Quarter: 2012Q3

REPORT INFORMATION
  Report Type: 
  Country: None (occurrence: None)
  Receive Date: 20120808
  Receipt Date: 20120730
  Transmission Date: 20120928
  Serious: Yes (Other)
  Sender: FDA-Public Use
  Company Number: US-BAYER-2012-042080

PATIENT
  Age: 23 Year
  Sex: Female
  Weight: 58.957 kg

DRUGS (4)
  1. OXYCODONE HCL [Concomitant]
     Indication: ARTHRALGIA
     Dosage: UNK
     Dates: start: 20060101, end: 20080101
  2. XANAX [Concomitant]
     Indication: INSOMNIA
     Dosage: UNK
     Dates: start: 20060101, end: 20100101
  3. XANAX [Concomitant]
     Indication: ANXIETY
  4. YAZ [Suspect]
     Indication: CONTRACEPTION
     Dosage: UNK
     Dates: start: 20040101, end: 20060101

REACTIONS (7)
  - PAIN [None]
  - EMOTIONAL DISTRESS [None]
  - CHOLELITHIASIS [None]
  - INJURY [None]
  - GALLBLADDER PAIN [None]
  - ANXIETY [None]
  - PSYCHOLOGICAL TRAUMA [None]
